FAERS Safety Report 6195865-X (Version None)
Quarter: 2009Q2

REPORT INFORMATION
  Report Type: 
  Country: None (occurrence: None)
  Receive Date: 20090520
  Receipt Date: 20090506
  Transmission Date: 20091009
  Serious: Yes (Hospitalization)
  Sender: FDA-Public Use
  Company Number: AU-ROCHE-632627

PATIENT
  Sex: Female

DRUGS (6)
  1. PEG-INTERFERON ALFA 2A (RO 25-8310) [Suspect]
     Indication: HEPATITIS C
     Route: 058
     Dates: start: 20081016
  2. RIBAVIRIN [Suspect]
     Indication: HEPATITIS C
     Dosage: THE PATIENT MISSED HER EVENING DOSE ON 05 MAY 2009.
     Route: 048
     Dates: start: 20081016, end: 20090505
  3. RIBAVIRIN [Suspect]
     Route: 048
     Dates: start: 20090506
  4. BLINDED VX-950 [Suspect]
     Indication: HEPATITIS C
     Route: 048
     Dates: start: 20081016, end: 20090107
  5. ACETAMINOPHEN [Concomitant]
     Indication: HEADACHE
     Dosage: INDICATION: HEADACHE, FLU-LIKE SYMPTOMS.
     Route: 048
     Dates: start: 20081023
  6. NEO-MERCAZOLE TAB [Concomitant]
     Indication: FATIGUE
     Route: 048
     Dates: start: 20090419

REACTIONS (3)
  - ANAEMIA [None]
  - CHEST PAIN [None]
  - PALPITATIONS [None]
